FAERS Safety Report 14508341 (Version 2)
Quarter: 2018Q1

REPORT INFORMATION
  Report Type: Spontaneous
  Country: JP (occurrence: JP)
  Receive Date: 20180209
  Receipt Date: 20180219
  Transmission Date: 20180509
  Serious: Yes (Death, Other)
  Sender: FDA-Public Use
  Company Number: JP-CONCORDIA PHARMACEUTICALS INC.-E2B_00009830

PATIENT
  Age: 58 Year
  Sex: Female

DRUGS (11)
  1. PREDNISOLONE. [Suspect]
     Active Substance: PREDNISOLONE
     Indication: CEREBELLAR ATAXIA
     Route: 048
  2. PREDNISOLONE. [Suspect]
     Active Substance: PREDNISOLONE
     Route: 048
  3. NIVOLUMAB [Concomitant]
     Active Substance: NIVOLUMAB
     Indication: LUNG ADENOCARCINOMA
     Dosage: ; CYCLICAL
  4. PREDNISOLONE. [Suspect]
     Active Substance: PREDNISOLONE
     Route: 048
  5. PREDNISOLONE. [Suspect]
     Active Substance: PREDNISOLONE
     Route: 048
  6. GEFITINIB. [Concomitant]
     Active Substance: GEFITINIB
     Indication: LUNG ADENOCARCINOMA
  7. NEDAPLATIN [Concomitant]
     Active Substance: NEDAPLATIN
     Indication: LUNG ADENOCARCINOMA
  8. ERLOTINIB [Concomitant]
     Active Substance: ERLOTINIB
     Indication: LUNG ADENOCARCINOMA
  9. VINORELBINE [Concomitant]
     Active Substance: VINORELBINE\VINORELBINE TARTRATE
     Indication: LUNG ADENOCARCINOMA
  10. PREDNISOLONE. [Suspect]
     Active Substance: PREDNISOLONE
     Indication: NYSTAGMUS
     Route: 048
  11. PREDNISOLONE. [Suspect]
     Active Substance: PREDNISOLONE
     Route: 048

REACTIONS (1)
  - Pneumonia [Fatal]
